FAERS Safety Report 5529604-X (Version None)
Quarter: 2007Q4

REPORT INFORMATION
  Report Type: 
  Country: None (occurrence: None)
  Receive Date: 20071129
  Receipt Date: 20071112
  Transmission Date: 20080405
  Serious: No
  Sender: FDA-Public Use
  Company Number: DE-ELI_LILLY_AND_COMPANY-DE200711003484

PATIENT
  Age: 40 Year
  Sex: Male

DRUGS (3)
  1. OLANZAPINE [Suspect]
     Dosage: 15 MG, DAILY (1/D)
     Route: 048
     Dates: start: 20061001, end: 20070516
  2. FLUANXOL [Interacting]
     Dosage: 2 ML, EVERY 14 DAYS
     Route: 030
     Dates: start: 20060201, end: 20070430
  3. NEXIUM [Concomitant]
     Dosage: 20 MG, DAILY (1/D)
     Route: 048

REACTIONS (2)
  - DRUG INTERACTION [None]
  - ERECTILE DYSFUNCTION [None]
